FAERS Safety Report 17327769 (Version 1)
Quarter: 2020Q1

REPORT INFORMATION
  Report Type: Spontaneous
  Country: FR (occurrence: FR)
  Receive Date: 20200127
  Receipt Date: 20200127
  Transmission Date: 20200409
  Serious: Yes (Other)
  Sender: FDA-Public Use
  Company Number: FR-PFIZER INC-2020031316

PATIENT
  Age: 66 Year
  Sex: Female

DRUGS (7)
  1. TOPOTECAN HYDROCHLORIDE. [Suspect]
     Active Substance: TOPOTECAN HYDROCHLORIDE
     Indication: MALIGNANT HISTIOCYTOSIS
     Dosage: 0.75 MG/M2, CYCLIC, J1-J5
  2. PREDNISONE. [Concomitant]
     Active Substance: PREDNISONE
     Indication: MALIGNANT HISTIOCYTOSIS
     Dosage: UNK UNK, CYCLIC
  3. VINCRISTINE [Concomitant]
     Active Substance: VINCRISTINE
     Indication: MALIGNANT HISTIOCYTOSIS
     Dosage: UNK UNK, CYCLIC
  4. DOXORUBICIN [Concomitant]
     Active Substance: DOXORUBICIN
     Indication: MALIGNANT HISTIOCYTOSIS
     Dosage: UNK UNK, CYCLIC
  5. TEMOZOLOMIDE. [Suspect]
     Active Substance: TEMOZOLOMIDE
     Indication: MALIGNANT HISTIOCYTOSIS
     Dosage: 150 MG/M2, CYCLIC, D1-D5
  6. CYCLOPHOSPHAMIDE. [Concomitant]
     Active Substance: CYCLOPHOSPHAMIDE
     Indication: MALIGNANT HISTIOCYTOSIS
     Dosage: UNK UNK, CYCLIC
  7. CLADRIBINE. [Concomitant]
     Active Substance: CLADRIBINE
     Indication: MALIGNANT HISTIOCYTOSIS
     Dosage: UNK UNK, CYCLIC (SIX CYCLES)

REACTIONS (1)
  - Haematotoxicity [Unknown]
